FAERS Safety Report 15587806 (Version 1)
Quarter: 2018Q4

REPORT INFORMATION
  Report Type: Spontaneous
  Country: IT (occurrence: IT)
  Receive Date: 20181105
  Receipt Date: 20181105
  Transmission Date: 20190205
  Serious: Yes (Hospitalization)
  Sender: FDA-Public Use
  Company Number: IT-PFIZER INC-2018446411

PATIENT
  Age: 13 Year
  Sex: Female
  Weight: 42 kg

DRUGS (3)
  1. ONCASPAR [Concomitant]
     Active Substance: PEGASPARGASE
     Dosage: 3700 KIU, UNK
     Route: 042
     Dates: start: 20180821, end: 20180821
  2. DOXORUBICINA ACCORD HEALTHCARE ITALIA [Concomitant]
     Active Substance: DOXORUBICIN HYDROCHLORIDE
     Dosage: 44.4 MG, UNK
     Route: 042
     Dates: start: 20180821, end: 20180828
  3. VINCRISTINA PFIZER ITALIA [Suspect]
     Active Substance: VINCRISTINE
     Indication: ACUTE LYMPHOCYTIC LEUKAEMIA
     Dosage: 2 MG, WEEKLY
     Route: 042
     Dates: start: 20180821, end: 20180828

REACTIONS (4)
  - Areflexia [Recovering/Resolving]
  - Asthenia [Recovering/Resolving]
  - Ataxia [Recovering/Resolving]
  - Neuropathy peripheral [Recovering/Resolving]

NARRATIVE: CASE EVENT DATE: 20180911
